FAERS Safety Report 14001623 (Version 1)
Quarter: 2017Q3

REPORT INFORMATION
  Report Type: Spontaneous
  Country: US (occurrence: US)
  Receive Date: 20170922
  Receipt Date: 20170922
  Transmission Date: 20171128
  Serious: Yes (Hospitalization)
  Sender: FDA-Public Use
  Company Number: US-JNJFOC-20170811701

PATIENT
  Age: 45 Year
  Sex: Female
  Weight: 96 kg

DRUGS (1)
  1. XARELTO [Suspect]
     Active Substance: RIVAROXABAN
     Indication: DEEP VEIN THROMBOSIS
     Route: 048
     Dates: start: 20151112, end: 201602

REACTIONS (1)
  - Dysfunctional uterine bleeding [Recovering/Resolving]

NARRATIVE: CASE EVENT DATE: 201601
